FAERS Safety Report 10587834 (Version 1)
Quarter: 2014Q4

REPORT INFORMATION
  Report Type: Spontaneous
  Country: BB (occurrence: BB)
  Receive Date: 20141117
  Receipt Date: 20141117
  Transmission Date: 20150529
  Serious: Yes (Other)
  Sender: FDA-Public Use
  Company Number: US-JNJCP-30000250223

PATIENT
  Sex: Female
  Weight: 89 kg

DRUGS (3)
  1. NEUTROGENA HEALTHY DEFENSE MOISTURIZER SPF 50 [Suspect]
     Active Substance: AVOBENZONE\HOMOSALATE\OCTISALATE\OCTOCRYLENE\OXYBENZONE
     Indication: DRY SKIN PROPHYLAXIS
     Dosage: QUARTER SIZE AMOUNT FOR THREE DAYS
     Route: 061
     Dates: end: 20141002
  2. NEUTROGENA OIL FREE ACNE WASH PINK GRAPEFRUIT FOAMING SCRUB [Suspect]
     Active Substance: SALICYLIC ACID
     Indication: ACNE
     Dosage: QUARTER SIZE AMOUNT FOR THREE DAYS
     Route: 061
     Dates: end: 20141002
  3. NEUTROGENA OIL FREE ACNE WASH PINK GRAPEFRUIT FACIAL CLEANSER [Suspect]
     Active Substance: SALICYLIC ACID
     Indication: ACNE
     Dosage: QUARTER SIZE AMOUNT FOR THREE DAYS
     Route: 061
     Dates: end: 20141002

REACTIONS (3)
  - Application site papules [Recovered/Resolved]
  - Application site rash [Recovered/Resolved]
  - Throat tightness [Recovered/Resolved]
